FAERS Safety Report 17188524 (Version 1)
Quarter: 2019Q4

REPORT INFORMATION
  Report Type: Spontaneous
  Country: US (occurrence: US)
  Receive Date: 20191222
  Receipt Date: 20191222
  Transmission Date: 20200122
  Serious: No
  Sender: FDA-Public Use
  Company Number: US-ACORDA-ACO_161445_2019

PATIENT
  Sex: Male

DRUGS (1)
  1. INBRIJA [Suspect]
     Active Substance: LEVODOPA
     Indication: PARKINSON^S DISEASE
     Dosage: 2 CAPSULES OF 42 MILLIGRAM, PRN, UP TO 5 TIMES PER DAY
     Dates: start: 20190830

REACTIONS (4)
  - Dyspnoea [Unknown]
  - Cough [Unknown]
  - Choking sensation [Unknown]
  - Speech disorder [Unknown]
